FAERS Safety Report 16477317 (Version 2)
Quarter: 2019Q3

REPORT INFORMATION
  Report Type: Report from Study
  Country: AU (occurrence: AU)
  Receive Date: 20190626
  Receipt Date: 20190704
  Transmission Date: 20191004
  Serious: No
  Sender: FDA-Public Use
  Company Number: AU-BEH-2019103358

PATIENT
  Age: 49 Year
  Sex: Female
  Weight: 107 kg

DRUGS (13)
  1. ELEVIT WOMEN^S MULTI [Concomitant]
     Dosage: UNK, QD
     Route: 065
  2. HIZENTRA [Suspect]
     Active Substance: HUMAN IMMUNOGLOBULIN G
     Dosage: UNK
     Route: 058
     Dates: start: 20190616, end: 20190616
  3. AURORIX [Concomitant]
     Active Substance: MOCLOBEMIDE
     Dosage: 300 MILLIGRAM, QD
     Route: 065
  4. MICROGYNON 21 [Concomitant]
     Dosage: 20, UNK, QD
     Route: 065
  5. HIZENTRA [Suspect]
     Active Substance: HUMAN IMMUNOGLOBULIN G
     Indication: SECONDARY IMMUNODEFICIENCY
     Dosage: 10 GRAM, QW
     Route: 058
     Dates: start: 20190601
  6. HIZENTRA [Suspect]
     Active Substance: HUMAN IMMUNOGLOBULIN G
     Indication: IMMUNODEFICIENCY COMMON VARIABLE
     Dosage: 10 GRAM, TOT
     Route: 058
     Dates: start: 20190608, end: 20190608
  7. PLAQUENIL S [Concomitant]
     Active Substance: HYDROXYCHLOROQUINE SULFATE
  8. MINOXIDIL. [Concomitant]
     Active Substance: MINOXIDIL
     Dosage: 0.5 MILLIGRAM, QD
     Route: 065
  9. XELJANZ [Concomitant]
     Active Substance: TOFACITINIB CITRATE
     Dosage: 5 MILLIGRAM
     Route: 065
  10. SUPER B COMPL [Concomitant]
     Dosage: 5 MILLILITER
     Route: 065
  11. SPIROLACTON [Concomitant]
     Dosage: 50 MILLIGRAM, QD
     Route: 065
  12. THYROXINE [Concomitant]
     Active Substance: LEVOTHYROXINE
  13. COLESTYRAMINE [Concomitant]
     Active Substance: CHOLESTYRAMINE
     Dosage: 4 GRAM, BID
     Route: 065

REACTIONS (4)
  - Nausea [Recovered/Resolved]
  - No adverse event [Unknown]
  - Underdose [Unknown]
  - Injection site erythema [Unknown]

NARRATIVE: CASE EVENT DATE: 20190601
